FAERS Safety Report 9524054 (Version 1)
Quarter: 2013Q3

REPORT INFORMATION
  Report Type: Spontaneous
  Country: CA (occurrence: CA)
  Receive Date: 20130916
  Receipt Date: 20130916
  Transmission Date: 20140515
  Serious: Yes (Disabling)
  Sender: FDA-Public Use
  Company Number: CA-ROCHE-1275772

PATIENT
  Age: 63 Year
  Sex: Female

DRUGS (3)
  1. TAMIFLU [Suspect]
     Indication: PRODUCT USED FOR UNKNOWN INDICATION
     Dosage: THERAPY DURATION: 5.0 DAYS
     Route: 048
  2. APO-METFORMIN [Concomitant]
     Route: 065
  3. AVALIDE [Concomitant]
     Route: 065

REACTIONS (1)
  - Anosmia [Not Recovered/Not Resolved]
